FAERS Safety Report 4281879-3 (Version None)
Quarter: 2004Q1

REPORT INFORMATION
  Report Type: 
  Country: None (occurrence: None)
  Receive Date: 20040112
  Receipt Date: 20030107
  Transmission Date: 20041129
  Serious: Yes (Other)
  Sender: FDA-Public Use
  Company Number: NSADSS2003001161

PATIENT
  Age: 35 Year
  Sex: Male

DRUGS (2)
  1. REOPRO [Suspect]
     Indication: ILL-DEFINED DISORDER
     Dosage: 1 IN 1 AS NECESSARY, INTRAVENOUS DRIP
     Route: 041
     Dates: start: 20021201
  2. HEPARIN SODIUM [Concomitant]

REACTIONS (1)
  - THROMBOCYTOPENIA [None]
